FAERS Safety Report 4383980-2 (Version None)
Quarter: 2004Q2

REPORT INFORMATION
  Report Type: 
  Country: None (occurrence: None)
  Receive Date: 20040624
  Receipt Date: 20040420
  Transmission Date: 20050107
  Serious: Yes (Other)
  Sender: FDA-Public Use
  Company Number: US-BRISTOL-MYERS SQUIBB COMPANY-12564944

PATIENT
  Age: 72 Year
  Sex: Female

DRUGS (5)
  1. BLINDED: ABATACEPT [Concomitant]
     Indication: RHEUMATOID ARTHRITIS
     Route: 042
     Dates: start: 20030327
  2. BLINDED: PLACEBO [Suspect]
     Indication: RHEUMATOID ARTHRITIS
     Route: 042
     Dates: start: 20030327
  3. METHOTREXATE [Suspect]
     Indication: RHEUMATOID ARTHRITIS
     Route: 048
     Dates: start: 19980701
  4. CELEBREX [Concomitant]
     Dates: end: 20040416
  5. PREDNISONE [Concomitant]

REACTIONS (1)
  - BREAST CANCER [None]
